FAERS Safety Report 6071856-4 (Version None)
Quarter: 2009Q1

REPORT INFORMATION
  Report Type: 
  Country: None (occurrence: None)
  Receive Date: 20090205
  Receipt Date: 20090123
  Transmission Date: 20090719
  Serious: Yes (Death)
  Sender: FDA-Public Use
  Company Number: MPS1-1000174

PATIENT
  Age: 6 Year
  Sex: Female
  Weight: 13.8 kg

DRUGS (4)
  1. ALDURAZYME [Suspect]
     Indication: MUCOPOLYSACCHARIDOSIS
     Dosage: 8.6 MG, 1X/W, INTRAVENOUS
     Route: 042
     Dates: start: 20040414
  2. DIPHENHYDRAMINE HCL [Concomitant]
  3. ACETAMINOPHEN [Concomitant]
  4. HEPARIN [Concomitant]

REACTIONS (10)
  - ASTHENIA [None]
  - CATHETER RELATED COMPLICATION [None]
  - CATHETER SITE SWELLING [None]
  - DYSPNOEA [None]
  - HYDROCEPHALUS [None]
  - HYPOXIA [None]
  - PNEUMONIA [None]
  - RESPIRATORY ARREST [None]
  - RESPIRATORY DISTRESS [None]
  - SLEEP APNOEA SYNDROME [None]
